FAERS Safety Report 20617617 (Version 1)
Quarter: 2022Q1

REPORT INFORMATION
  Report Type: Spontaneous
  Country: US (occurrence: US)
  Receive Date: 20220321
  Receipt Date: 20220321
  Transmission Date: 20220423
  Serious: Yes (Other)
  Sender: FDA-Public Use
  Company Number: US-NOVARTISPH-NVSC2022US061966

PATIENT
  Sex: Female

DRUGS (2)
  1. DIOVAN HCT [Suspect]
     Active Substance: HYDROCHLOROTHIAZIDE\VALSARTAN
     Indication: Product used for unknown indication
     Dosage: 160 MG, QD
     Route: 065
  2. VITAMIN D [Suspect]
     Active Substance: VITAMIN D NOS
     Indication: Product used for unknown indication
     Dosage: UNK
     Route: 065

REACTIONS (9)
  - Uveitis [Unknown]
  - Vision blurred [Unknown]
  - Dry mouth [Unknown]
  - Dry skin [Unknown]
  - Trichorrhexis [Unknown]
  - Hypotension [Unknown]
  - Headache [Unknown]
  - Arthralgia [Unknown]
  - Pain [Unknown]
